FAERS Safety Report 18584009 (Version 3)
Quarter: 2020Q4

REPORT INFORMATION
  Report Type: Spontaneous
  Country: US (occurrence: US)
  Receive Date: 20201207
  Receipt Date: 20201230
  Transmission Date: 20210114
  Serious: Yes (Death)
  Sender: FDA-Public Use
  Company Number: US-ROCHE-2727661

PATIENT
  Age: 75 Year
  Sex: Male

DRUGS (3)
  1. ESBRIET [Suspect]
     Active Substance: PIRFENIDONE
     Indication: IDIOPATHIC PULMONARY FIBROSIS
     Dosage: ON DAY 1-7?ONE TABLET DAYS 1-7 THREE TIMES A DAY, TWO TABLETS DAYS 8-14 THREE TIMES A DAY, AND THREE
     Route: 048
     Dates: start: 202007
  2. ESBRIET [Suspect]
     Active Substance: PIRFENIDONE
     Dosage: ON DAY 8-14
     Route: 048
  3. ESBRIET [Suspect]
     Active Substance: PIRFENIDONE
     Dosage: ON DAY 15
     Route: 048

REACTIONS (1)
  - Cardiac arrest [Fatal]

NARRATIVE: CASE EVENT DATE: 20201129
